FAERS Safety Report 11663921 (Version 2)
Quarter: 2015Q4

REPORT INFORMATION
  Report Type: Report from Study
  Country: US (occurrence: US)
  Receive Date: 20151027
  Receipt Date: 20151029
  Transmission Date: 20160304
  Serious: No
  Sender: FDA-Public Use
  Company Number: PHEH2015US001229

PATIENT
  Sex: Male
  Weight: 52.1 kg

DRUGS (1)
  1. EXJADE [Suspect]
     Active Substance: DEFERASIROX
     Indication: SICKLE CELL ANAEMIA
     Dosage: 3 DF, QD (2 TABLETS MON TO FRI, 3 TABLETS SAT TO SUN DISSOLVED),DAILY AS DIRECTED
     Route: 065
     Dates: start: 201403

REACTIONS (1)
  - Abdominal discomfort [Unknown]
